FAERS Safety Report 4931466-6 (Version None)
Quarter: 2006Q1

REPORT INFORMATION
  Report Type: 
  Country: None (occurrence: None)
  Receive Date: 20060228
  Receipt Date: 20060215
  Transmission Date: 20060701
  Serious: Yes (Hospitalization, Other)
  Sender: FDA-Public Use
  Company Number: 2006024196

PATIENT
  Sex: Male
  Weight: 65.7716 kg

DRUGS (11)
  1. DETROL [Suspect]
     Indication: HYPERTONIC BLADDER
     Dosage: ORAL
     Route: 048
  2. DETROL LA [Suspect]
     Indication: HYPERTONIC BLADDER
     Dosage: 4 MG (4 MG, 1 IN 1 D), ORAL
     Route: 048
     Dates: start: 20050101
  3. VITAMIN D [Concomitant]
  4. CALCIUM CITRATE (CALCIUM CITRATE) [Concomitant]
  5. VIAGRA [Concomitant]
  6. DOXYLAMINE SUCCINATE [Concomitant]
  7. OCUVITE (ASCORBIC ACID, RETINOL, TOCOPHEROL) [Concomitant]
  8. ASPIRIN [Concomitant]
  9. CENTRUM SILVER (ASCORBIC ACID, CALCIUM, MINERALS NOS, RETINOL, TOCOPHE [Concomitant]
  10. FISH OLI (FISH OIL) [Concomitant]
  11. CINNAMON (CINNAMON) [Concomitant]

REACTIONS (3)
  - BODY HEIGHT DECREASED [None]
  - DRUG EFFECT DECREASED [None]
  - DRY MOUTH [None]
